FAERS Safety Report 10088891 (Version 1)
Quarter: 2014Q2

REPORT INFORMATION
  Report Type: Report from Study
  Country: BR (occurrence: BR)
  Receive Date: 20140421
  Receipt Date: 20140421
  Transmission Date: 20141212
  Serious: Yes (Other)
  Sender: FDA-Public Use
  Company Number: PHHY2014BR045114

PATIENT
  Sex: Female
  Weight: 83 kg

DRUGS (2)
  1. ACLASTA [Suspect]
     Indication: OSTEOPOROSIS
     Dosage: 1 DF, EVERY YEAR
     Route: 042
     Dates: start: 2013
  2. PURAN T4 [Concomitant]
     Dosage: UNK UKN, UNK

REACTIONS (3)
  - Dislocation of vertebra [Not Recovered/Not Resolved]
  - Pain [Not Recovered/Not Resolved]
  - Intervertebral disc protrusion [Recovering/Resolving]
